FAERS Safety Report 5836118-6 (Version None)
Quarter: 2008Q3

REPORT INFORMATION
  Report Type: 
  Country: None (occurrence: None)
  Receive Date: 20080806
  Receipt Date: 20080208
  Transmission Date: 20090109
  Serious: Yes (Hospitalization)
  Sender: FDA-Public Use
  Company Number: ES-ABBOTT-08P-144-0437524-00

PATIENT
  Age: 73 Year
  Sex: Female

DRUGS (6)
  1. TEVETEN HCT [Suspect]
     Indication: HYPERTENSION
     Dosage: 600 MG/12.5 MG
     Route: 048
     Dates: start: 20050501, end: 20070401
  2. RABEPRAZOLE SODIUM [Suspect]
     Indication: GASTROOESOPHAGEAL REFLUX DISEASE
     Route: 048
     Dates: start: 20060101, end: 20070401
  3. PROMESTRIENE [Concomitant]
     Indication: ATROPHIC VULVOVAGINITIS
     Route: 061
  4. CINITAPRIDE TARTRATE [Concomitant]
     Indication: DYSPEPSIA
     Route: 048
     Dates: start: 20060101, end: 20070401
  5. SIMVASTATIN [Concomitant]
     Indication: HYPERCHOLESTEROLAEMIA
     Route: 048
     Dates: start: 20050201
  6. ACETAMINOPHEN [Concomitant]
     Indication: PAIN
     Route: 048

REACTIONS (1)
  - RENAL FAILURE ACUTE [None]
